FAERS Safety Report 6603148-6 (Version None)
Quarter: 2010Q1

REPORT INFORMATION
  Report Type: 
  Country: None (occurrence: None)
  Receive Date: 20100226
  Receipt Date: 20100217
  Transmission Date: 20100710
  Serious: Yes (Hospitalization)
  Sender: FDA-Public Use
  Company Number: US-ABBOTT-10P-163-0627695-00

PATIENT
  Sex: Male
  Weight: 98.972 kg

DRUGS (12)
  1. HUMIRA [Suspect]
     Indication: CROHN'S DISEASE
     Route: 058
     Dates: start: 20091001, end: 20100216
  2. HUMIRA [Suspect]
     Route: 058
     Dates: start: 20100216
  3. DILANTIN [Concomitant]
     Indication: CONVULSION
     Dates: start: 19960101
  4. DILANTIN [Concomitant]
     Indication: CEREBROVASCULAR ACCIDENT
  5. DILANTIN [Concomitant]
     Dates: start: 19960101
  6. DILANTIN [Concomitant]
  7. NEURONTIN [Concomitant]
     Indication: CEREBROVASCULAR ACCIDENT
     Dates: start: 19960101
  8. NEURONTIN [Concomitant]
     Indication: CONVULSION
  9. CANASA [Concomitant]
     Indication: DIARRHOEA
     Dates: start: 20100216
  10. CANASA [Concomitant]
  11. ASACOL [Concomitant]
     Indication: CROHN'S DISEASE
     Dates: start: 20100216
  12. ASACOL [Concomitant]

REACTIONS (10)
  - ABNORMAL BEHAVIOUR [None]
  - CROHN'S DISEASE [None]
  - DIARRHOEA [None]
  - DYSSTASIA [None]
  - EATING DISORDER [None]
  - HAEMATOCHEZIA [None]
  - PAIN IN EXTREMITY [None]
  - PNEUMONIA [None]
  - PNEUMONIA ASPIRATION [None]
  - PYREXIA [None]
